FAERS Safety Report 6905121-7 (Version None)
Quarter: 2010Q3

REPORT INFORMATION
  Report Type: 
  Country: None (occurrence: None)
  Receive Date: 20100804
  Receipt Date: 20091012
  Transmission Date: 20110219
  Serious: Yes (Other)
  Sender: FDA-Public Use
  Company Number: US-PFIZER INC-2009225504

PATIENT
  Sex: Male
  Weight: 92.971 kg

DRUGS (10)
  1. LYRICA [Suspect]
     Indication: SCIATICA
     Dosage: 25 MG, 2X/DAY
     Route: 048
     Dates: start: 20090513, end: 20090521
  2. LYRICA [Suspect]
     Indication: SURGERY
  3. HYDROCODONE [Concomitant]
     Dosage: UNK
  4. CARISOPRODOL [Concomitant]
     Dosage: UNK
  5. IBUPROFEN [Concomitant]
     Dosage: UNK
  6. PRILOSEC [Concomitant]
     Dosage: UNK
  7. PREDNISONE [Concomitant]
  8. LASIX [Concomitant]
  9. CALCIUM [Concomitant]
  10. VICODIN [Concomitant]

REACTIONS (5)
  - GAIT DISTURBANCE [None]
  - JOINT SPRAIN [None]
  - OEDEMA PERIPHERAL [None]
  - PAIN IN EXTREMITY [None]
  - SKIN DISCOLOURATION [None]
